FAERS Safety Report 4359290-6 (Version None)
Quarter: 2004Q2

REPORT INFORMATION
  Report Type: 
  Country: None (occurrence: None)
  Receive Date: 20040512
  Receipt Date: 20040428
  Transmission Date: 20050107
  Serious: Yes (Hospitalization)
  Sender: FDA-Public Use
  Company Number: 2004050002

PATIENT
  Age: 45 Year
  Sex: Male

DRUGS (6)
  1. CARISOPRODOL [Suspect]
     Dosage: 700 MG TID, PO
     Route: 048
  2. NEURONTIN [Concomitant]
     Dosage: 600 MG TID, PO
     Route: 048
  3. IBUPROFEN TABLETS [Concomitant]
  4. SEROQUEL [Suspect]
     Dosage: 25 MG HS, PO
     Route: 048
  5. AMBIEN [Suspect]
     Dosage: 10 MG HS, PO
     Route: 048
  6. ZOLOFT [Suspect]
     Dosage: 200 MG HS, PO
     Route: 048

REACTIONS (6)
  - ABNORMAL BEHAVIOUR [None]
  - AMNESIA [None]
  - DRUG SCREEN POSITIVE [None]
  - DRUG TOLERANCE INCREASED [None]
  - LOSS OF CONSCIOUSNESS [None]
  - RESTLESSNESS [None]
